FAERS Safety Report 4918046-3 (Version None)
Quarter: 2006Q1

REPORT INFORMATION
  Report Type: 
  Country: None (occurrence: None)
  Receive Date: 20060221
  Receipt Date: 20051207
  Transmission Date: 20060701
  Serious: Yes (Hospitalization, Disabling, Other)
  Sender: FDA-Public Use
  Company Number: US-MERCK-0512USA01387

PATIENT
  Sex: Female
  Weight: 66 kg

DRUGS (2)
  1. VIOXX [Suspect]
     Indication: ARTHRITIS
     Route: 048
     Dates: start: 20010101, end: 20020901
  2. THERAGESIC [Concomitant]
     Route: 065

REACTIONS (6)
  - ARTHRITIS [None]
  - CAROTID ARTERY OCCLUSION [None]
  - CHEST PAIN [None]
  - CORONARY ARTERY OCCLUSION [None]
  - MYOCARDIAL INFARCTION [None]
  - TENDONITIS [None]
